FAERS Safety Report 18104584 (Version 1)
Quarter: 2020Q3

REPORT INFORMATION
  Report Type: Other
  Country: US (occurrence: JP)
  Receive Date: 20200803
  Receipt Date: 20200803
  Transmission Date: 20201103
  Serious: Yes (Hospitalization, Other)
  Sender: FDA-Public Use
  Company Number: JP-BRECKENRIDGE PHARMACEUTICAL, INC.-2088058

PATIENT
  Age: 72 Year
  Sex: Male

DRUGS (8)
  1. LOXOPROFEN SODIUM HYDRATE [Concomitant]
     Active Substance: LOXOPROFEN SODIUM DIHYDRATE
  2. AZULENE SODIUM SULFONATE [Concomitant]
     Active Substance: SODIUM DECAHYDROAZULENE-1-SULFONATE
  3. ALLOPURINOL. [Concomitant]
     Active Substance: ALLOPURINOL
  4. TEPRENONE [Concomitant]
     Active Substance: TEPRENONE
  5. OMEPRAZOLE. [Suspect]
     Active Substance: OMEPRAZOLE
     Indication: DUODENAL ULCER
     Route: 048
  6. TELMISARTAN. [Concomitant]
     Active Substance: TELMISARTAN
  7. EPERISONE [Concomitant]
     Active Substance: EPERISONE
  8. POTASSIUM CHLORIDE. [Concomitant]
     Active Substance: POTASSIUM CHLORIDE

REACTIONS (6)
  - Hyperammonaemia [None]
  - Rhabdomyolysis [None]
  - Mental status changes [None]
  - Hyperlactacidaemia [None]
  - Metabolic acidosis [None]
  - Renal tubular acidosis [None]
